FAERS Safety Report 19125452 (Version 1)
Quarter: 2021Q2

REPORT INFORMATION
  Report Type: Report from Study
  Country: CA (occurrence: CA)
  Receive Date: 20210412
  Receipt Date: 20210412
  Transmission Date: 20210717
  Serious: Yes (Other)
  Sender: FDA-Public Use
  Company Number: CA-BAUSCH-BL-2021-011912

PATIENT
  Age: 38 Year
  Sex: Male

DRUGS (11)
  1. SALBUTAMOL [Suspect]
     Active Substance: ALBUTEROL
     Indication: ASTHMA
     Route: 065
  2. FORMOTEROL/MOMETASONE [Suspect]
     Active Substance: FORMOTEROL\MOMETASONE
     Indication: ASTHMA
     Route: 065
  3. NUCALA [Concomitant]
     Active Substance: MEPOLIZUMAB
     Indication: ASTHMA
     Route: 042
  4. SINGULAIR [Suspect]
     Active Substance: MONTELUKAST SODIUM
     Indication: ASTHMA
     Route: 065
  5. BUDESONIDE/FORMOTEROL FUMARATE [Suspect]
     Active Substance: BUDESONIDE\FORMOTEROL FUMARATE
     Indication: ASTHMA
  6. GLYCOPYRRONIUM BROMIDE [Suspect]
     Active Substance: GLYCOPYRROLATE
     Indication: ASTHMA
     Route: 065
  7. TIOTROPIUM BROMIDE [Suspect]
     Active Substance: TIOTROPIUM BROMIDE
     Indication: ASTHMA
     Route: 048
  8. CETIRIZINE HYDROCHLORIDE. [Suspect]
     Active Substance: CETIRIZINE HYDROCHLORIDE
     Indication: PRODUCT USED FOR UNKNOWN INDICATION
     Route: 065
  9. SINGULAIR [Suspect]
     Active Substance: MONTELUKAST SODIUM
     Indication: PRODUCT USED FOR UNKNOWN INDICATION
  10. SALBUTAMOL SULFATE [Suspect]
     Active Substance: ALBUTEROL SULFATE
     Indication: PRODUCT USED FOR UNKNOWN INDICATION
     Route: 065
  11. AVAMYS [Suspect]
     Active Substance: FLUTICASONE FUROATE
     Indication: PRODUCT USED FOR UNKNOWN INDICATION
     Dosage: SPRAY, METERED?DOSE
     Route: 065

REACTIONS (18)
  - Asthma [Unknown]
  - Vitamin D deficiency [Unknown]
  - Pneumonia [Unknown]
  - Cough [Unknown]
  - Rhinitis allergic [Unknown]
  - Food allergy [Unknown]
  - Blood immunoglobulin E increased [Unknown]
  - Therapeutic product effect incomplete [Unknown]
  - Dermatitis atopic [Unknown]
  - Eosinophil count increased [Unknown]
  - Condition aggravated [Unknown]
  - Dyspnoea [Unknown]
  - Papule [Unknown]
  - Rash [Unknown]
  - Respiratory symptom [Unknown]
  - Rhinorrhoea [Unknown]
  - Nasal congestion [Unknown]
  - Wheezing [Unknown]
